FAERS Safety Report 6011319-5 (Version None)
Quarter: 2008Q4

REPORT INFORMATION
  Report Type: 
  Country: None (occurrence: None)
  Receive Date: 20081218
  Receipt Date: 20081205
  Transmission Date: 20090506
  Serious: Yes (Hospitalization)
  Sender: FDA-Public Use
  Company Number: DE-BIOGENIDEC-2008BI032934

PATIENT
  Age: 45 Year
  Sex: Female

DRUGS (2)
  1. AVONEX [Suspect]
     Indication: MULTIPLE SCLEROSIS
     Route: 030
     Dates: start: 20080601, end: 20081003
  2. AVONEX [Suspect]
     Route: 030
     Dates: start: 20081121

REACTIONS (3)
  - HUMERUS FRACTURE [None]
  - NASOPHARYNGITIS [None]
  - RESPIRATORY TRACT INFECTION [None]
